FAERS Safety Report 19003601 (Version 1)
Quarter: 2021Q1

REPORT INFORMATION
  Report Type: Spontaneous
  Country: US (occurrence: US)
  Receive Date: 20210312
  Receipt Date: 20210312
  Transmission Date: 20210420
  Serious: No
  Sender: FDA-Public Use
  Company Number: US-PFIZER INC-2021162357

PATIENT
  Age: 40 Year
  Sex: Female
  Weight: 61.23 kg

DRUGS (2)
  1. XANAX [Suspect]
     Active Substance: ALPRAZOLAM
     Indication: BLOOD PRESSURE INCREASED
     Dosage: 0.5 DF (1/2 OF XANAX)
  2. XANAX [Suspect]
     Active Substance: ALPRAZOLAM
     Indication: HEART RATE INCREASED

REACTIONS (9)
  - Paraesthesia [Unknown]
  - Dyskinesia [Unknown]
  - Drug ineffective for unapproved indication [Unknown]
  - Dyspnoea [Unknown]
  - Pyrexia [Unknown]
  - Off label use [Unknown]
  - Headache [Unknown]
  - Chest pain [Unknown]
  - Musculoskeletal stiffness [Unknown]
